FAERS Safety Report 17062893 (Version 7)
Quarter: 2022Q1

REPORT INFORMATION
  Report Type: Other
  Country: DE (occurrence: None)
  Receive Date: 20191122
  Receipt Date: 20220117
  Transmission Date: 20220423
  Serious: Yes (Hospitalization, Other)
  Sender: FDA-Public Use
  Company Number: DE-ROCHE-2234704

PATIENT
  Age: 50 Year
  Sex: Male

DRUGS (10)
  1. OCREVUS [Suspect]
     Active Substance: OCRELIZUMAB
     Indication: Progressive relapsing multiple sclerosis
     Route: 042
     Dates: start: 20180719
  2. OCREVUS [Suspect]
     Active Substance: OCRELIZUMAB
     Route: 042
     Dates: start: 20190218
  3. OCREVUS [Suspect]
     Active Substance: OCRELIZUMAB
     Route: 042
     Dates: start: 20200109
  4. OCREVUS [Suspect]
     Active Substance: OCRELIZUMAB
     Route: 042
     Dates: start: 20210315
  5. OCREVUS [Suspect]
     Active Substance: OCRELIZUMAB
     Route: 042
     Dates: start: 20210624
  6. TRIMIPRAMINE [Concomitant]
     Active Substance: TRIMIPRAMINE
     Dosage: 0-0-1 NOCTE
  7. CANDESARTAN [Concomitant]
     Active Substance: CANDESARTAN
  8. INSULIN HUMAN [Concomitant]
     Active Substance: INSULIN HUMAN
  9. HUMALOG [Concomitant]
     Active Substance: INSULIN LISPRO
  10. DALFAMPRIDINE [Concomitant]
     Active Substance: DALFAMPRIDINE

REACTIONS (12)
  - Multiple sclerosis relapse [Recovering/Resolving]
  - Appendicitis [Recovered/Resolved]
  - Bronchitis [Unknown]
  - Nervous system disorder [Recovered/Resolved]
  - Gait disturbance [Recovering/Resolving]
  - Fall [Unknown]
  - Muscle strain [Recovered/Resolved]
  - Skin laceration [Recovered/Resolved]
  - Ingrowing nail [Recovered/Resolved]
  - Hypoaesthesia [Recovered/Resolved]
  - Muscular weakness [Recovered/Resolved]
  - Asthenia [Recovered/Resolved]

NARRATIVE: CASE EVENT DATE: 20180719
